FAERS Safety Report 15629422 (Version 1)
Quarter: 2018Q4

REPORT INFORMATION
  Report Type: Report from Study
  Country: IN (occurrence: IN)
  Receive Date: 20181117
  Receipt Date: 20181117
  Transmission Date: 20190205
  Serious: Yes (Other)
  Sender: FDA-Public Use
  Company Number: IN-ROCHE-1952611

PATIENT
  Age: 55 Year
  Sex: Female

DRUGS (1)
  1. AVASTIN [Suspect]
     Active Substance: BEVACIZUMAB
     Indication: OVARIAN CANCER
     Dosage: ON 30/MAY/2017 WITH RE-INTRODUCTION OF AVASTIN 300 MG.
     Route: 042
     Dates: start: 20150413

REACTIONS (4)
  - Thrombosis [Unknown]
  - Urinary tract infection [Unknown]
  - Abdominal infection [Unknown]
  - Haematuria [Unknown]

NARRATIVE: CASE EVENT DATE: 20170403
